FAERS Safety Report 8277991-4 (Version None)
Quarter: 2012Q2

REPORT INFORMATION
  Report Type: 
  Country: None (occurrence: None)
  Receive Date: 20120412
  Receipt Date: 20120405
  Transmission Date: 20120825
  Serious: Yes (Hospitalization)
  Sender: FDA-Public Use
  Company Number: GB-PFIZER INC-2012087891

PATIENT
  Age: 78 Year
  Sex: Female

DRUGS (1)
  1. IBUPROFEN TABLETS [Suspect]

REACTIONS (1)
  - IRON DEFICIENCY ANAEMIA [None]
